FAERS Safety Report 8006806-4 (Version None)
Quarter: 2011Q4

REPORT INFORMATION
  Report Type: 
  Country: None (occurrence: None)
  Receive Date: 20111227
  Receipt Date: 20111221
  Transmission Date: 20120403
  Serious: No
  Sender: FDA-Public Use
  Company Number: PHEH2011US012319

PATIENT
  Sex: Female
  Weight: 95 kg

DRUGS (9)
  1. GABAPENTIN [Concomitant]
     Dosage: 300 MG, UNK
  2. GLIPIZIDE [Concomitant]
     Dosage: 10 MG, UNK
  3. RANITIDINE [Concomitant]
     Dosage: 150 MG, UNK
  4. METFORMIN [Concomitant]
     Dosage: 1000 MG, UNK
  5. TASIGNA [Suspect]
     Dosage: 300 MG, BID (2 CAPSULES TWICE A DAY)
     Route: 048
  6. OXYCODONE HCL [Concomitant]
     Dosage: 10 MG, UNK
  7. CALCIUM D [Concomitant]
  8. DEPO-PROVERA [Concomitant]
     Dosage: 150 MG/ML, UNK
  9. ENALAPRIL MALEATE [Concomitant]
     Dosage: 10 MG, UNK

REACTIONS (4)
  - DECREASED APPETITE [None]
  - DIZZINESS [None]
  - NAUSEA [None]
  - WEIGHT DECREASED [None]
